FAERS Safety Report 13889441 (Version 1)
Quarter: 2017Q3

REPORT INFORMATION
  Report Type: Spontaneous
  Country: CA (occurrence: CA)
  Receive Date: 20170822
  Receipt Date: 20170822
  Transmission Date: 20171127
  Serious: Yes (Death)
  Sender: FDA-Public Use
  Company Number: CA-ASTRAZENECA-2017SE84000

PATIENT
  Sex: Female

DRUGS (7)
  1. FASLODEX [Suspect]
     Active Substance: FULVESTRANT
     Dosage: MONTHLY
     Route: 030
  2. PAMIDRONATE [Concomitant]
     Active Substance: PAMIDRONATE DISODIUM
     Dosage: ONCE IN THREE MONTHS
  3. NOVOPRANOL [Concomitant]
     Active Substance: PROPRANOLOL HYDROCHLORIDE
  4. MULTIPLE VITAMINS [Concomitant]
     Active Substance: VITAMINS
     Dosage: DAILY
  5. CALCIUM [Concomitant]
     Active Substance: CALCIUM
     Dosage: DAILY
  6. PANTOPRAZOLE [Concomitant]
     Active Substance: PANTOPRAZOLE
  7. VITAMINS NOS [Concomitant]
     Active Substance: VITAMINS
     Dosage: DAILY

REACTIONS (1)
  - Death [Fatal]
